FAERS Safety Report 4310366-9 (Version None)
Quarter: 2004Q1

REPORT INFORMATION
  Report Type: 
  Country: None (occurrence: None)
  Receive Date: 20040301
  Receipt Date: 20031118
  Transmission Date: 20041129
  Serious: No
  Sender: FDA-Public Use
  Company Number: WAES 0311USA02104

PATIENT
  Age: 75 Year
  Sex: Male
  Weight: 68.0396 kg

DRUGS (8)
  1. ZETIA [Suspect]
     Indication: HYPERLIPIDAEMIA
     Dosage: 10 MG/DAILY/PO; DAILY/PO
     Route: 048
     Dates: start: 20030101, end: 20030101
  2. ZETIA [Suspect]
     Indication: HYPERLIPIDAEMIA
     Dosage: 10 MG/DAILY/PO; DAILY/PO
     Route: 048
     Dates: start: 20030305, end: 20030310
  3. ALDACTAZIDE [Concomitant]
  4. ALTACE [Concomitant]
  5. FOLTX [Concomitant]
  6. NIACIN [Concomitant]
  7. ASPIRIN [Concomitant]
  8. CLONIDINE [Concomitant]

REACTIONS (3)
  - ABDOMINAL PAIN [None]
  - MEDICATION ERROR [None]
  - NAUSEA [None]
